FAERS Safety Report 5249140-8 (Version None)
Quarter: 2007Q1

REPORT INFORMATION
  Report Type: 
  Country: None (occurrence: None)
  Receive Date: 20070228
  Receipt Date: 20070215
  Transmission Date: 20070707
  Serious: Yes (Other)
  Sender: FDA-Public Use
  Company Number: PHFR2007CY00828

PATIENT
  Age: 78 Year
  Sex: Male

DRUGS (1)
  1. ZOMETA [Suspect]
     Indication: PROSTATE CANCER
     Dosage: 4 MG, QW4
     Route: 048
     Dates: start: 20051012

REACTIONS (3)
  - DENTAL OPERATION [None]
  - IMPAIRED HEALING [None]
  - OSTEONECROSIS [None]
